FAERS Safety Report 5497083-7 (Version None)
Quarter: 2007Q4

REPORT INFORMATION
  Report Type: 
  Country: None (occurrence: None)
  Receive Date: 20071023
  Receipt Date: 20071018
  Transmission Date: 20080405
  Serious: No
  Sender: FDA-Public Use
  Company Number: 2007-165069-NL

PATIENT
  Sex: Male

DRUGS (4)
  1. MIRTAZAPINE [Suspect]
     Dosage: 15 MG/30 MG/DF
     Dates: start: 20041202, end: 20041206
  2. MIRTAZAPINE [Suspect]
     Dosage: 15 MG/30 MG/DF
     Dates: start: 20041207, end: 20050301
  3. MIRTAZAPINE [Suspect]
     Dosage: 15 MG/30 MG/DF
     Dates: start: 20050301, end: 20050401
  4. MIRTAZAPINE [Suspect]
     Dosage: 15 MG/30 MG/DF
     Dates: end: 20070101

REACTIONS (20)
  - AMNESIA [None]
  - ASTHENIA [None]
  - CONVULSION [None]
  - DRUG ABUSE [None]
  - DRUG INEFFECTIVE [None]
  - FOOD ALLERGY [None]
  - GASTRIC DISORDER [None]
  - HAEMORRHAGE [None]
  - HEPATOCELLULAR DAMAGE [None]
  - IMMUNE SYSTEM DISORDER [None]
  - MALNUTRITION [None]
  - MENTAL DISORDER [None]
  - MIGRAINE [None]
  - MILK ALLERGY [None]
  - MUSCLE TWITCHING [None]
  - NAUSEA [None]
  - PRURITUS GENERALISED [None]
  - RENAL DISORDER [None]
  - SLEEP DISORDER [None]
  - VISUAL DISTURBANCE [None]
